FAERS Safety Report 5277299-5 (Version None)
Quarter: 2007Q1

REPORT INFORMATION
  Report Type: 
  Country: None (occurrence: None)
  Receive Date: 20061213
  Receipt Date: 20060613
  Transmission Date: 20070707
  Serious: No
  Sender: FDA-Public Use
  Company Number: 2006UW14548

PATIENT
  Sex: Female

DRUGS (3)
  1. SEROQUEL [Suspect]
  2. VICODIN [Suspect]
  3. XANAX [Suspect]

REACTIONS (1)
  - CONVULSION [None]
